FAERS Safety Report 18951228 (Version 1)
Quarter: 2021Q1

REPORT INFORMATION
  Report Type: Spontaneous
  Country: US (occurrence: US)
  Receive Date: 20210228
  Receipt Date: 20210228
  Transmission Date: 20210420
  Serious: Yes (Life-Threatening, Hospitalization)
  Sender: FDA-Public Use
  Company Number: US-JNJFOC-20210234945

PATIENT
  Age: 56 Year
  Sex: Female

DRUGS (1)
  1. PARACETAMOL [Suspect]
     Active Substance: ACETAMINOPHEN
     Indication: PRODUCT USED FOR UNKNOWN INDICATION
     Route: 065

REACTIONS (13)
  - Drug-induced liver injury [Unknown]
  - Overdose [Unknown]
  - Gangrene [Unknown]
  - Antiphospholipid antibodies positive [Unknown]
  - Skin haemorrhage [Unknown]
  - Purpura fulminans [Unknown]
  - Disseminated intravascular coagulation [Unknown]
  - Acute kidney injury [Unknown]
  - Protein S decreased [Unknown]
  - Shock [Unknown]
  - Multiple organ dysfunction syndrome [Unknown]
  - Klebsiella sepsis [Unknown]
  - Protein C decreased [Unknown]
